FAERS Safety Report 12117483 (Version 5)
Quarter: 2016Q2

REPORT INFORMATION
  Report Type: Report from Study
  Country: PL (occurrence: PL)
  Receive Date: 20160225
  Receipt Date: 20160415
  Transmission Date: 20160815
  Serious: Yes (Hospitalization, Other)
  Sender: FDA-Public Use
  Company Number: PL-ROCHE-1716482

PATIENT
  Age: 60 Year
  Sex: Male
  Weight: 76 kg

DRUGS (9)
  1. RANTUDIL [Concomitant]
     Active Substance: ACEMETACIN
     Dosage: AD HOC
     Route: 048
  2. ROACTEMRA [Suspect]
     Active Substance: TOCILIZUMAB
     Route: 042
     Dates: start: 20151216
  3. METYPRED [Concomitant]
     Active Substance: METHYLPREDNISOLONE
     Dosage: 4-8 MG, WHILE EXACERBATION - ONCE A DAY
     Route: 048
  4. ROACTEMRA [Suspect]
     Active Substance: TOCILIZUMAB
     Indication: RHEUMATOID ARTHRITIS
     Route: 042
     Dates: start: 20140205, end: 20151216
  5. ROACTEMRA [Suspect]
     Active Substance: TOCILIZUMAB
     Route: 042
     Dates: start: 20151118
  6. METHOTREXATE [Concomitant]
     Active Substance: METHOTREXATE
     Indication: RHEUMATOID ARTHRITIS
     Route: 048
     Dates: start: 2009
  7. ROACTEMRA [Suspect]
     Active Substance: TOCILIZUMAB
     Route: 042
     Dates: start: 20151021
  8. TRAMAL [Concomitant]
     Active Substance: TRAMADOL
     Dosage: DOSAGE REPORTED AS: ONCE A DAY, AD HOC. 100 UNIT NOT REPORTED.
     Route: 048
     Dates: start: 201307
  9. ROACTEMRA [Suspect]
     Active Substance: TOCILIZUMAB
     Route: 042
     Dates: start: 20150605

REACTIONS (22)
  - White blood cell count increased [Recovered/Resolved]
  - Monocyte count increased [Unknown]
  - Nephrolithiasis [Unknown]
  - Haematocrit decreased [Recovering/Resolving]
  - Urine abnormality [Unknown]
  - Non-small cell lung cancer [Not Recovered/Not Resolved]
  - Blood glucose increased [Recovered/Resolved]
  - Haemoptysis [Recovering/Resolving]
  - Laryngitis [Unknown]
  - C-reactive protein increased [Unknown]
  - Blood bilirubin decreased [Unknown]
  - Sputum purulent [Recovering/Resolving]
  - Haemoglobin decreased [Recovered/Resolved]
  - Granulocyte count increased [Recovered/Resolved]
  - Haemangioma of liver [Unknown]
  - Bacterial test positive [Unknown]
  - Productive cough [Recovering/Resolving]
  - Vocal cord polyp [Recovered/Resolved]
  - Hepatic cyst [Unknown]
  - Adrenal mass [Unknown]
  - Red blood cell count decreased [Not Recovered/Not Resolved]
  - Lymphocyte count decreased [Recovering/Resolving]

NARRATIVE: CASE EVENT DATE: 201601
